FAERS Safety Report 20651493 (Version 8)
Quarter: 2022Q4

REPORT INFORMATION
  Report Type: Report from Study
  Country: CA (occurrence: CA)
  Receive Date: 20220330
  Receipt Date: 20221212
  Transmission Date: 20230113
  Serious: Yes (Hospitalization, Other)
  Sender: FDA-Public Use
  Company Number: CA-NOVARTISPH-PHHY2017CA159991

PATIENT
  Age: 69 Year
  Sex: Female

DRUGS (24)
  1. XOLAIR [Suspect]
     Active Substance: OMALIZUMAB
     Indication: Asthma
     Dosage: 300 MG, EVERY 4 WEEKS
     Route: 058
     Dates: start: 20170516
  2. XOLAIR [Suspect]
     Active Substance: OMALIZUMAB
     Dosage: UNK
     Route: 058
     Dates: start: 20171004
  3. XOLAIR [Suspect]
     Active Substance: OMALIZUMAB
     Dosage: UNK
     Route: 058
     Dates: start: 2017
  4. XOLAIR [Suspect]
     Active Substance: OMALIZUMAB
     Dosage: UNK
     Route: 058
     Dates: start: 20171228
  5. XOLAIR [Suspect]
     Active Substance: OMALIZUMAB
     Dosage: UNK
     Route: 058
     Dates: start: 20180221
  6. XOLAIR [Suspect]
     Active Substance: OMALIZUMAB
     Dosage: UNK
     Route: 058
     Dates: start: 20180331
  7. XOLAIR [Suspect]
     Active Substance: OMALIZUMAB
     Dosage: 300 MG, EVERY 4 WEEKS
     Route: 058
     Dates: start: 20180418
  8. XOLAIR [Suspect]
     Active Substance: OMALIZUMAB
     Dosage: 300 MG, EVERY 4 WEEKS
     Route: 058
     Dates: start: 20181004
  9. XOLAIR [Suspect]
     Active Substance: OMALIZUMAB
     Dosage: 300 MG, EVERY 4 WEEKS
     Route: 058
     Dates: start: 20190619
  10. XOLAIR [Suspect]
     Active Substance: OMALIZUMAB
     Dosage: 300MG, EVERY 4 WEEKS
     Route: 058
     Dates: start: 20190814
  11. XOLAIR [Suspect]
     Active Substance: OMALIZUMAB
     Dosage: 300 MG, EVERY 4 WEEKS
     Route: 058
     Dates: start: 20190814
  12. XOLAIR [Suspect]
     Active Substance: OMALIZUMAB
     Dosage: 300 MG, EVERY 4 WEEKS
     Route: 058
     Dates: start: 201909
  13. XOLAIR [Suspect]
     Active Substance: OMALIZUMAB
     Dosage: 300 MG, EVERY 4 WEEKS
     Route: 058
     Dates: start: 20191108
  14. XOLAIR [Suspect]
     Active Substance: OMALIZUMAB
     Dosage: 300 MG, EVERY 4 WEEKS
     Route: 058
     Dates: start: 20220221
  15. XOLAIR [Suspect]
     Active Substance: OMALIZUMAB
     Dosage: 300 MG, EVERY 4 WEEKS
     Route: 058
  16. GLYCOPYRRONIUM\INDACATEROL [Suspect]
     Active Substance: GLYCOPYRRONIUM\INDACATEROL
     Indication: Nervous system disorder
     Dosage: 1 DOSAGE FORM, QD
     Dates: start: 201507
  17. GLYCOPYRRONIUM\INDACATEROL [Suspect]
     Active Substance: GLYCOPYRRONIUM\INDACATEROL
     Indication: Asthma
  18. ASMANEX [Concomitant]
     Active Substance: MOMETASONE FUROATE
     Indication: Inhalation therapy
     Dosage: 1 DOSAGE FORM, QD
  19. PULMICORT TURBUHALER [Concomitant]
     Active Substance: BUDESONIDE
     Indication: Inhalation therapy
     Dosage: 1 DOSAGE FORM, BID (NASAL DANS SINUS RINSE)
  20. BRICANYL [Concomitant]
     Active Substance: TERBUTALINE SULFATE
     Indication: Bronchitis
     Dosage: 1 DOSAGE FORM, PRN (3-4 FOIS/SEM TIMES A WEEK (9JANUARY)
  21. BUDESONIDE [Concomitant]
     Active Substance: BUDESONIDE
     Indication: Antiinflammatory therapy
     Dosage: 1 DOSAGE FORM, BID (1 VAP IN EACH NOSTRIL)
     Route: 065
  22. HYDRASENSE [Concomitant]
     Indication: Anticholinergic syndrome
     Dosage: UNK UNK, PRN
     Route: 065
  23. HYDRASENSE [Concomitant]
     Dosage: 1 DOSAGE FORM, QD
     Dates: start: 2015
  24. HYDRASENSE [Concomitant]
     Dosage: UNK
     Route: 065

REACTIONS (26)
  - Pneumonia [Unknown]
  - Pseudomonas bronchitis [Unknown]
  - Pseudomonas infection [Unknown]
  - Dyspnoea [Unknown]
  - Achromobacter infection [Unknown]
  - Polyp [Recovering/Resolving]
  - Influenza [Recovering/Resolving]
  - Chills [Recovering/Resolving]
  - Cough [Not Recovered/Not Resolved]
  - Increased bronchial secretion [Unknown]
  - Sinusitis [Unknown]
  - Nasal congestion [Recovered/Resolved]
  - Ear infection [Unknown]
  - Sputum discoloured [Recovering/Resolving]
  - Bronchitis [Recovering/Resolving]
  - Weight decreased [Unknown]
  - Secretion discharge [Unknown]
  - Sensitivity to weather change [Unknown]
  - Productive cough [Recovering/Resolving]
  - Blood pressure systolic increased [Unknown]
  - Emotional distress [Unknown]
  - Nasal polyps [Recovering/Resolving]
  - Body temperature decreased [Unknown]
  - Pyrexia [Unknown]
  - Headache [Recovered/Resolved]
  - Skin bacterial infection [Unknown]

NARRATIVE: CASE EVENT DATE: 20150101
